FAERS Safety Report 6876579-7 (Version None)
Quarter: 2010Q3

REPORT INFORMATION
  Report Type: 
  Country: None (occurrence: None)
  Receive Date: 20100723
  Receipt Date: 20100712
  Transmission Date: 20110219
  Serious: Yes (Hospitalization, Other)
  Sender: FDA-Public Use
  Company Number: 2010GW000498

PATIENT
  Sex: Male
  Weight: 71.3962 kg

DRUGS (17)
  1. MAXAIR [Suspect]
     Indication: ASTHMA
     Dosage: 400 UG;QD;INH
     Route: 055
  2. MAXAIR [Suspect]
     Indication: CHRONIC OBSTRUCTIVE PULMONARY DISEASE
     Dosage: 400 UG;QD;INH
     Route: 055
  3. INTAL [Concomitant]
  4. PULMICORT [Concomitant]
  5. ADVAIR DISKUS 100/50 [Concomitant]
  6. ALBUTEROL [Concomitant]
  7. SPIRIVA [Concomitant]
  8. SIMVASTATIN [Concomitant]
  9. SEROQUEL [Concomitant]
  10. LISINOPRIL [Concomitant]
  11. LORAZEPAM [Concomitant]
  12. PLAVIX [Concomitant]
  13. FISH OIL [Concomitant]
  14. ASPIRIN [Concomitant]
  15. CALCIUM + VITAMIN D [Concomitant]
  16. OXYCODONE [Concomitant]
  17. CORTICOSTEROIDS [Concomitant]

REACTIONS (28)
  - ASTHMA [None]
  - ATRIAL FLUTTER [None]
  - BLOOD CREATINE INCREASED [None]
  - BRONCHIECTASIS [None]
  - CHRONIC OBSTRUCTIVE PULMONARY DISEASE [None]
  - COMPRESSION FRACTURE [None]
  - DISCOMFORT [None]
  - FALL [None]
  - FATIGUE [None]
  - GASTROENTERITIS VIRAL [None]
  - HEAD INJURY [None]
  - HYPOAESTHESIA [None]
  - HYPOPHAGIA [None]
  - INFUSION SITE REACTION [None]
  - LOBAR PNEUMONIA [None]
  - MENTAL STATUS CHANGES [None]
  - OSTEONECROSIS [None]
  - OSTEOPENIA [None]
  - OSTEOPOROSIS [None]
  - PRESYNCOPE [None]
  - RETCHING [None]
  - SINUS TACHYCARDIA [None]
  - SUPRAVENTRICULAR TACHYCARDIA [None]
  - SWOLLEN TONGUE [None]
  - TENDERNESS [None]
  - THORACIC VERTEBRAL FRACTURE [None]
  - VOMITING [None]
  - WITHDRAWAL SYNDROME [None]
